FAERS Safety Report 24461624 (Version 1)
Quarter: 2024Q4

REPORT INFORMATION
  Report Type: Report from Study
  Country: US (occurrence: US)
  Receive Date: 20241018
  Receipt Date: 20241018
  Transmission Date: 20250114
  Serious: No
  Sender: ROCHE
  Company Number: US-ROCHE-3554211

PATIENT
  Age: 71 Year
  Sex: Female

DRUGS (17)
  1. RITUXAN [Suspect]
     Active Substance: RITUXIMAB
     Indication: Non-Hodgkin^s lymphoma
     Route: 041
     Dates: start: 20231107
  2. RITUXAN [Suspect]
     Active Substance: RITUXIMAB
     Indication: Metastases to lung
     Route: 041
     Dates: start: 20200403, end: 20200522
  3. RITUXAN [Suspect]
     Active Substance: RITUXIMAB
     Indication: Breast cancer female
  4. ASPIRIN [Concomitant]
     Active Substance: ASPIRIN
  5. ATORVASTATIN [Concomitant]
     Active Substance: ATORVASTATIN
  6. BENADRYL ALLERGY [Concomitant]
     Active Substance: DIPHENHYDRAMINE HYDROCHLORIDE
  7. CITRATE [Concomitant]
     Active Substance: CITRIC ACID MONOHYDRATE
  8. CLOPIDOGREL BESILATE [Concomitant]
     Active Substance: CLOPIDOGREL BESILATE
  9. FLUZONE [Concomitant]
     Active Substance: INFLUENZA A VIRUS A/CALIFORNIA/7/2009 X-179A (H1N1) ANTIGEN (FORMALDEHYDE INACTIVATED)\INFLUENZA A V
  10. LISINOPRIL [Concomitant]
     Active Substance: LISINOPRIL
  11. METOPROLOL [Concomitant]
     Active Substance: METOPROLOL
  12. MODERNA COVID-19 VACCINE [Concomitant]
     Active Substance: ELASOMERAN
  13. NITROGLYCERIN [Concomitant]
     Active Substance: NITROGLYCERIN
  14. PANTOPRAZOLE SODIUM [Concomitant]
     Active Substance: PANTOPRAZOLE SODIUM
  15. ERGOCALCIFEROL [Concomitant]
     Active Substance: ERGOCALCIFEROL
  16. ACETAMINOPHEN [Concomitant]
     Active Substance: ACETAMINOPHEN
  17. DIPHENHYDRAMINE [Concomitant]
     Active Substance: DIPHENHYDRAMINE

REACTIONS (2)
  - Off label use [Unknown]
  - No adverse event [Unknown]
